FAERS Safety Report 10148968 (Version 3)
Quarter: 2014Q2

REPORT INFORMATION
  Report Type: Spontaneous
  Country: US (occurrence: US)
  Receive Date: 20140502
  Receipt Date: 20140606
  Transmission Date: 20141212
  Serious: Yes (Hospitalization)
  Sender: FDA-Public Use
  Company Number: US-ROCHE-1390848

PATIENT
  Age: 87 Year
  Sex: Female

DRUGS (1)
  1. ACTIVASE [Suspect]
     Indication: ISCHAEMIC STROKE
     Route: 042
     Dates: start: 20140419, end: 20140419

REACTIONS (3)
  - Convulsion [Unknown]
  - Apnoea [Unknown]
  - Malaise [Unknown]
